FAERS Safety Report 25884390 (Version 1)
Quarter: 2025Q4

REPORT INFORMATION
  Report Type: Spontaneous
  Country: EU (occurrence: EU)
  Receive Date: 20251006
  Receipt Date: 20251006
  Transmission Date: 20260117
  Serious: Yes (Hospitalization)
  Sender: DR REDDYS
  Company Number: EU-RDY-DEU/2025/09/014973

PATIENT
  Age: 15 Year
  Sex: Male

DRUGS (1)
  1. FINGOLIMOD [Suspect]
     Active Substance: FINGOLIMOD
     Indication: Relapsing-remitting multiple sclerosis

REACTIONS (1)
  - Rebound effect [Recovering/Resolving]
